FAERS Safety Report 5011752-4 (Version None)
Quarter: 2006Q2

REPORT INFORMATION
  Report Type: 
  Country: None (occurrence: None)
  Receive Date: 20060526
  Receipt Date: 20060516
  Transmission Date: 20061013
  Serious: Yes (Other)
  Sender: FDA-Public Use
  Company Number: GB-JNJFOC-20060504120

PATIENT
  Age: 55 Year
  Sex: Male

DRUGS (10)
  1. DURAGESIC-50 [Suspect]
     Route: 062
  2. DURAGESIC-50 [Suspect]
     Route: 062
  3. DURAGESIC-50 [Suspect]
     Dosage: HAS BEEN ON DUROGESIC THERAPY FOR 2 YEARS, DIFFERENT STREGTHS, NO DETAILS GIVEN
     Route: 062
  4. AMITRIPTYLINE HCL [Concomitant]
  5. SIMVASTATIN [Concomitant]
  6. LOSARTAN POTASSIUM [Concomitant]
  7. AMLODIPINE [Concomitant]
  8. BENDROFLUMETHIAZIDE [Concomitant]
  9. PARACETAMOL [Concomitant]
  10. TRAMADOL HCL [Concomitant]

REACTIONS (7)
  - ANXIETY [None]
  - DEPRESSION [None]
  - DISTURBANCE IN ATTENTION [None]
  - DRUG WITHDRAWAL SYNDROME [None]
  - FATIGUE [None]
  - INADEQUATE ANALGESIA [None]
  - SOMNOLENCE [None]
